FAERS Safety Report 15984658 (Version 2)
Quarter: 2019Q1

REPORT INFORMATION
  Report Type: Spontaneous
  Country: CO (occurrence: CO)
  Receive Date: 20190220
  Receipt Date: 20190314
  Transmission Date: 20190418
  Serious: Yes (Other)
  Sender: FDA-Public Use
  Company Number: CO-ASTRAZENECA-2019SE25721

PATIENT
  Age: 58 Year

DRUGS (1)
  1. XIGDUO XR [Suspect]
     Active Substance: DAPAGLIFLOZIN PROPANEDIOL\METFORMIN HYDROCHLORIDE
     Dosage: 10 MG + 1000 MG UNKNOWN
     Route: 048

REACTIONS (2)
  - Diabetic ketoacidosis [Unknown]
  - Balanoposthitis [Unknown]

NARRATIVE: CASE EVENT DATE: 201901
